FAERS Safety Report 10904801 (Version 1)
Quarter: 2015Q1

REPORT INFORMATION
  Report Type: Report from Study
  Country: US (occurrence: US)
  Receive Date: 20150311
  Receipt Date: 20150311
  Transmission Date: 20150721
  Serious: Yes (Other)
  Sender: FDA-Public Use
  Company Number: US-SA-2014SA171326

PATIENT
  Age: 49 Year
  Sex: Female

DRUGS (3)
  1. AUBAGIO [Suspect]
     Active Substance: TERIFLUNOMIDE
     Indication: MULTIPLE SCLEROSIS
     Route: 048
     Dates: start: 20141107, end: 20141222
  2. AUBAGIO [Suspect]
     Active Substance: TERIFLUNOMIDE
     Indication: MULTIPLE SCLEROSIS
     Route: 048
  3. AUBAGIO [Suspect]
     Active Substance: TERIFLUNOMIDE
     Indication: MULTIPLE SCLEROSIS
     Route: 065
     Dates: start: 201409

REACTIONS (17)
  - Impaired driving ability [Recovered/Resolved]
  - Pruritus [Unknown]
  - Memory impairment [Unknown]
  - Cataract [Unknown]
  - Insomnia [Unknown]
  - Stress [Unknown]
  - Cognitive disorder [Recovering/Resolving]
  - Multiple sclerosis relapse [Unknown]
  - Paraesthesia [Unknown]
  - Unevaluable event [Unknown]
  - Activities of daily living impaired [Unknown]
  - Hypokinesia [Recovered/Resolved]
  - Loss of consciousness [Unknown]
  - Fatigue [Unknown]
  - Muscle spasms [Unknown]
  - Dysstasia [Unknown]
  - Excessive eye blinking [Unknown]

NARRATIVE: CASE EVENT DATE: 201411
